FAERS Safety Report 5732448-7 (Version None)
Quarter: 2008Q2

REPORT INFORMATION
  Report Type: 
  Country: None (occurrence: None)
  Receive Date: 20080507
  Receipt Date: 20080424
  Transmission Date: 20081010
  Serious: Yes (Hospitalization)
  Sender: FDA-Public Use
  Company Number: ENTC2007-0286

PATIENT
  Age: 74 Year
  Sex: Male

DRUGS (3)
  1. STALEVO 100 [Suspect]
     Indication: PARKINSON'S DISEASE
     Dosage: 600MG (150, 4 IN 1 D), ORAL
     Route: 048
     Dates: start: 20061204
  2. SEROQUEL [Concomitant]
  3. CYNT [Concomitant]

REACTIONS (7)
  - BLOOD UREA INCREASED [None]
  - C-REACTIVE PROTEIN INCREASED [None]
  - DRUG TOXICITY [None]
  - GENERAL PHYSICAL HEALTH DETERIORATION [None]
  - PARKINSON'S DISEASE [None]
  - PLATELET COUNT ABNORMAL [None]
  - RHABDOMYOLYSIS [None]
